FAERS Safety Report 12390985 (Version 3)
Quarter: 2016Q3

REPORT INFORMATION
  Report Type: Spontaneous
  Country: FR (occurrence: FR)
  Receive Date: 20160520
  Receipt Date: 20160706
  Transmission Date: 20161109
  Serious: Yes (Hospitalization, Disabling, Congenital Anomaly)
  Sender: FDA-Public Use
  Company Number: FR-ABBVIE-16P-056-1633354-00

PATIENT
  Age: 10 Year
  Sex: Male

DRUGS (1)
  1. DEPAKINE [Suspect]
     Active Substance: VALPROATE SODIUM
     Indication: MATERNAL EXPOSURE TIMING UNSPECIFIED
     Route: 064

REACTIONS (32)
  - Seizure [Recovered/Resolved]
  - Congenital nose malformation [Not Recovered/Not Resolved]
  - Congenital hand malformation [Unknown]
  - Bronchitis [Recovered/Resolved]
  - Cardiac disorder [Unknown]
  - Arachnodactyly [Unknown]
  - Tympanoplasty [Unknown]
  - Premature baby [Not Recovered/Not Resolved]
  - Psychomotor retardation [Not Recovered/Not Resolved]
  - Patent ductus arteriosus [Unknown]
  - Psychotic disorder [Unknown]
  - Respiratory distress [Unknown]
  - Asthenia [Unknown]
  - Nipple disorder [Not Recovered/Not Resolved]
  - Hypertonia [Unknown]
  - Dysmorphism [Not Recovered/Not Resolved]
  - Scaphocephaly [Not Recovered/Not Resolved]
  - Dysmorphism [Not Recovered/Not Resolved]
  - Bacterial infection [Unknown]
  - Nasopharyngitis [Recovered/Resolved]
  - Inguinal hernia [Recovered/Resolved]
  - Abnormal behaviour [Unknown]
  - Anxiety [Unknown]
  - Pulmonary malformation [Unknown]
  - Urinary tract infection [Unknown]
  - Foot deformity [Unknown]
  - Nervous system disorder [Unknown]
  - Communication disorder [Unknown]
  - Foetal exposure during pregnancy [Unknown]
  - Ear infection [Recovered/Resolved]
  - Hypoglycaemia [Recovered/Resolved]
  - Developmental delay [Not Recovered/Not Resolved]

NARRATIVE: CASE EVENT DATE: 1985
